FAERS Safety Report 14521601 (Version 1)
Quarter: 2018Q1

REPORT INFORMATION
  Report Type: Spontaneous
  Country: US (occurrence: US)
  Receive Date: 20180212
  Receipt Date: 20180212
  Transmission Date: 20180509
  Serious: No
  Sender: FDA-Public Use
  Company Number: US-AMAG PHARMACEUTICALS, INC.-AMAG201704111

PATIENT

DRUGS (4)
  1. FOLATE [Concomitant]
     Active Substance: FOLATE SODIUM
     Indication: HIGH RISK PREGNANCY
     Dosage: UNK
     Route: 065
     Dates: start: 20171011
  2. MAKENA [Suspect]
     Active Substance: HYDROXYPROGESTERONE CAPROATE
     Indication: PREMATURE DELIVERY
     Dosage: 250 MG/ML, WEEKLY
     Route: 030
     Dates: start: 20171214, end: 20171226
  3. PROMETRIUM [Concomitant]
     Active Substance: PROGESTERONE
     Indication: HIGH RISK PREGNANCY
     Dosage: 200 MG, QHS
     Route: 067
     Dates: start: 20171111
  4. PRENATAL VITAMINS [Concomitant]
     Active Substance: VITAMINS
     Indication: HIGH RISK PREGNANCY
     Dosage: 1 TABS, QD
     Route: 048
     Dates: start: 20171002

REACTIONS (5)
  - Faeces discoloured [Recovered/Resolved]
  - Vomiting [Recovered/Resolved]
  - Pelvic pain [Recovered/Resolved]
  - Dizziness [Recovered/Resolved]
  - Diarrhoea [Recovered/Resolved]

NARRATIVE: CASE EVENT DATE: 20171222
